FAERS Safety Report 9848023 (Version 1)
Quarter: 2014Q1

REPORT INFORMATION
  Report Type: Spontaneous
  Country: US (occurrence: None)
  Receive Date: 20140123
  Receipt Date: 20140123
  Transmission Date: 20141002
  Serious: No
  Sender: FDA-Public Use
  Company Number: None

PATIENT
  Age: 61 Year
  Sex: Male
  Weight: 129.6 kg

DRUGS (1)
  1. SIMVASTATIN [Suspect]
     Route: 048
     Dates: start: 20120803, end: 20130501

REACTIONS (6)
  - Local swelling [None]
  - Pain in extremity [None]
  - Hyperkalaemia [None]
  - Renal failure acute [None]
  - Blood creatine phosphokinase increased [None]
  - Myalgia [None]
